FAERS Safety Report 5815367-7 (Version None)
Quarter: 2008Q3

REPORT INFORMATION
  Report Type: 
  Country: None (occurrence: None)
  Receive Date: 20080718
  Receipt Date: 20080706
  Transmission Date: 20090109
  Serious: Yes (Death, Other)
  Sender: FDA-Public Use
  Company Number: DZ-PFIZER INC-2008056095

PATIENT
  Age: 51 Year
  Sex: Female

DRUGS (6)
  1. PREGABALIN [Suspect]
     Indication: PAIN
     Route: 048
     Dates: start: 20080619, end: 20080620
  2. PREGABALIN [Suspect]
     Indication: DIABETIC NEUROPATHY
  3. PREGABALIN [Suspect]
     Indication: CEREBROVASCULAR ACCIDENT
  4. CATALGINE [Concomitant]
     Route: 048
  5. SOMAZINA [Concomitant]
     Route: 048
  6. AMARYL [Concomitant]
     Route: 048

REACTIONS (4)
  - BLOOD GLUCOSE ABNORMAL [None]
  - COGNITIVE DISORDER [None]
  - HYPERSENSITIVITY [None]
  - RENAL FAILURE [None]
